FAERS Safety Report 18176555 (Version 3)
Quarter: 2020Q3

REPORT INFORMATION
  Report Type: Spontaneous
  Country: SI (occurrence: SI)
  Receive Date: 20200820
  Receipt Date: 20200916
  Transmission Date: 20201103
  Serious: Yes (Hospitalization, Other)
  Sender: FDA-Public Use
  Company Number: SI-JNJFOC-20200820029

PATIENT
  Age: 67 Year
  Sex: Male
  Weight: 110 kg

DRUGS (8)
  1. XARELTO [Suspect]
     Active Substance: RIVAROXABAN
     Indication: ATRIAL FIBRILLATION
     Dosage: 20 MG
     Route: 048
     Dates: start: 201306, end: 20191115
  2. ROSUVASTATIN CALCIUM. [Concomitant]
     Active Substance: ROSUVASTATIN CALCIUM
     Dosage: 20 MG
  3. XARELTO [Suspect]
     Active Substance: RIVAROXABAN
     Dosage: UNK
     Route: 048
     Dates: start: 201912
  4. PRENESSA [Concomitant]
     Active Substance: PERINDOPRIL
     Dosage: 4 MG
  5. FRAXIPARINE [Concomitant]
     Active Substance: NADROPARIN CALCIUM
     Dosage: UNK
     Route: 058
  6. CORYOL                             /00984501/ [Concomitant]
     Active Substance: CARVEDILOL
     Dosage: 12.5 MG
  7. INSULIN [Concomitant]
     Active Substance: INSULIN NOS
  8. FRAXIPARINE [Concomitant]
     Active Substance: NADROPARIN CALCIUM
     Route: 058

REACTIONS (7)
  - Balance disorder [Unknown]
  - Schwannoma [Recovered/Resolved]
  - Ear pain [Unknown]
  - Deafness [Unknown]
  - Brain oedema [Unknown]
  - Cerebral haemorrhage [Unknown]
  - Dizziness [Unknown]

NARRATIVE: CASE EVENT DATE: 20191115
